FAERS Safety Report 24237701 (Version 1)
Quarter: 2024Q3

REPORT INFORMATION
  Report Type: Report from Study
  Country: US (occurrence: None)
  Receive Date: 20240822
  Receipt Date: 20240822
  Transmission Date: 20241017
  Serious: Yes (Hospitalization, Other)
  Sender: ASTRAZENECA
  Company Number: 2021A767067

PATIENT
  Sex: Female

DRUGS (1)
  1. TAGRISSO [Suspect]
     Active Substance: OSIMERTINIB
     Indication: Non-small cell lung cancer
     Route: 048
     Dates: start: 201910

REACTIONS (5)
  - Hypertension [Unknown]
  - Heart rate decreased [Unknown]
  - Hypotension [Unknown]
  - Oxygen saturation decreased [Unknown]
  - Treatment noncompliance [Unknown]
